FAERS Safety Report 8259236 (Version 2)
Quarter: 2012Q4

REPORT INFORMATION
  Report Type: 
  Country: US (occurrence: US)
  Receive Date: 20111122
  Receipt Date: 20120920
  Transmission Date: 20130627
  Serious: No
  Sender: FDA-Public Use
  Company Number: US-US-EMD SERONO, INC.-7096361

PATIENT
  Sex: Female

DRUGS (10)
  1. REBIF [Suspect]
     Indication: MULTIPLE SCLEROSIS
     Route: 058
     Dates: start: 201102, end: 20110902
  2. BACLOFEN [Concomitant]
     Indication: MUSCLE SPASMS
  3. ZANAFLEX [Concomitant]
     Indication: MUSCLE SPASMS
  4. DEXAMETHASONE [Concomitant]
     Indication: ANTIINFLAMMATORY THERAPY
  5. FAMOTIDINE [Concomitant]
     Indication: DYSPEPSIA
  6. VICOPROFEN [Concomitant]
     Indication: PAIN
  7. NUCYNTA [Concomitant]
     Indication: PAIN
  8. PROVIGIL [Concomitant]
     Indication: POOR QUALITY SLEEP
  9. FEMHRT [Concomitant]
     Indication: HORMONE REPLACEMENT THERAPY
  10. ACETAMINOPHEN WITH CODEINE [Concomitant]
     Indication: PAIN

REACTIONS (4)
  - Multiple sclerosis [Not Recovered/Not Resolved]
  - White blood cell count decreased [Recovered/Resolved]
  - Platelet count decreased [Recovered/Resolved]
  - Fatigue [Not Recovered/Not Resolved]
